FAERS Safety Report 6734107-0 (Version None)
Quarter: 2010Q2

REPORT INFORMATION
  Report Type: 
  Country: None (occurrence: None)
  Receive Date: 20100520
  Receipt Date: 20100512
  Transmission Date: 20101027
  Serious: Yes (Other)
  Sender: FDA-Public Use
  Company Number: GR-BAYER-201025380GPV

PATIENT
  Age: 63 Year
  Sex: Male

DRUGS (1)
  1. CIPROXIN [Suspect]
     Indication: PROSTATITIS
     Dosage: TOTAL DAILY DOSE: 1000 MG  UNIT DOSE: 500 MG
     Route: 048
     Dates: start: 20081101, end: 20080101

REACTIONS (2)
  - LIP SWELLING [None]
  - OROPHARYNGEAL DISCOMFORT [None]
